FAERS Safety Report 9134071 (Version 1)
Quarter: 2013Q1

REPORT INFORMATION
  Report Type: Spontaneous
  Country: US (occurrence: US)
  Receive Date: 20130304
  Receipt Date: 20130304
  Transmission Date: 20140127
  Serious: Yes (Other)
  Sender: FDA-Public Use
  Company Number: US-BIOGENIDEC-2013BI019498

PATIENT
  Sex: Female

DRUGS (3)
  1. AVONEX [Suspect]
     Indication: MULTIPLE SCLEROSIS
     Route: 030
  2. BISOPROLOL-HYDROCHLOROTHIAZIDE [Concomitant]
     Indication: HYPERTENSION
  3. DEXAMETHASONE [Concomitant]
     Indication: MULTIPLE SCLEROSIS

REACTIONS (4)
  - Drug-induced liver injury [Unknown]
  - Hepatic enzyme increased [Recovered/Resolved]
  - Jaundice [Unknown]
  - Nausea [Unknown]
